FAERS Safety Report 17722934 (Version 1)
Quarter: 2020Q2

REPORT INFORMATION
  Report Type: Report from Study
  Country: None (occurrence: US)
  Receive Date: 20200429
  Receipt Date: 20200429
  Transmission Date: 20200714
  Serious: Yes (Other)
  Sender: FDA-Public Use
  Company Number: US-BIOVITRUM-2020US0293

PATIENT
  Age: 48 Year
  Sex: Female

DRUGS (2)
  1. KINERET [Suspect]
     Active Substance: ANAKINRA
     Indication: STILL^S DISEASE
     Route: 058
     Dates: start: 20190409
  2. KINERET [Suspect]
     Active Substance: ANAKINRA
     Indication: RHEUMATOID ARTHRITIS

REACTIONS (11)
  - Neuropathy peripheral [Unknown]
  - Drug ineffective [Unknown]
  - Injection site pruritus [Unknown]
  - Skin disorder [Unknown]
  - Product dose omission [Recovered/Resolved]
  - Off label use [Unknown]
  - Stress fracture [Unknown]
  - Injection site reaction [Unknown]
  - Type 2 diabetes mellitus [Unknown]
  - Injection site bruising [Unknown]
  - Peripheral venous disease [Unknown]

NARRATIVE: CASE EVENT DATE: 202001
